FAERS Safety Report 7545113-0 (Version None)
Quarter: 2011Q2

REPORT INFORMATION
  Report Type: 
  Country: None (occurrence: None)
  Receive Date: 20110610
  Receipt Date: 20110610
  Transmission Date: 20111010
  Serious: No
  Sender: FDA-Public Use
  Company Number: None

PATIENT
  Age: 55 Year
  Sex: Female
  Weight: 154.223 kg

DRUGS (1)
  1. PRADAXA [Suspect]
     Indication: DEEP VEIN THROMBOSIS
     Dosage: 150 A DAY PO
     Route: 048
     Dates: start: 20110226, end: 20110304

REACTIONS (3)
  - DYSPEPSIA [None]
  - THROAT IRRITATION [None]
  - CHEST PAIN [None]
